FAERS Safety Report 23385187 (Version 2)
Quarter: 2024Q1

REPORT INFORMATION
  Report Type: Report from Study
  Country: AU (occurrence: US)
  Receive Date: 20240110
  Receipt Date: 20240211
  Transmission Date: 20240410
  Serious: Yes (Hospitalization)
  Sender: FDA-Public Use
  Company Number: AU-ABBVIE-5552423

PATIENT
  Sex: Female

DRUGS (3)
  1. HUMIRA [Suspect]
     Active Substance: ADALIMUMAB
     Indication: Rheumatoid arthritis
     Dosage: LAST ADMIN DATE: 2023
     Route: 058
     Dates: start: 20230322
  2. HUMIRA [Suspect]
     Active Substance: ADALIMUMAB
     Route: 058
     Dates: start: 2023
  3. RINVOQ [Suspect]
     Active Substance: UPADACITINIB
     Indication: Rheumatoid arthritis
     Route: 048
     Dates: start: 2023, end: 2023

REACTIONS (7)
  - Diverticulitis [Recovering/Resolving]
  - Hospitalisation [Unknown]
  - Aphasia [Unknown]
  - Arthropathy [Not Recovered/Not Resolved]
  - Therapeutic response shortened [Not Recovered/Not Resolved]
  - Bowel movement irregularity [Unknown]
  - Anal incontinence [Unknown]

NARRATIVE: CASE EVENT DATE: 20230101
